FAERS Safety Report 8767036 (Version 2)
Quarter: 2013Q2

REPORT INFORMATION
  Report Type: Report from Study
  Country: JP (occurrence: JP)
  Receive Date: 20120904
  Receipt Date: 20130501
  Transmission Date: 20140414
  Serious: Yes (Hospitalization)
  Sender: FDA-Public Use
  Company Number: JP-VERTEX PHARMACEUTICAL INC.-2012-020420

PATIENT
  Age: 60 Year
  Sex: Female

DRUGS (11)
  1. VX-950 (TELAPREVIR) [Suspect]
     Indication: CHRONIC HEPATITIS C
     Dosage: 2250 MG, QD
     Route: 048
     Dates: start: 20120711, end: 20120713
  2. VX-950 (TELAPREVIR) [Suspect]
     Dosage: 1500 MG, QD
     Route: 048
     Dates: start: 20120714, end: 20120815
  3. RIBAVIRIN [Suspect]
     Indication: CHRONIC HEPATITIS C
     Dosage: 600 MG, QD
     Route: 048
     Dates: start: 20120711, end: 20120718
  4. RIBAVIRIN [Suspect]
     Dosage: 400 MG, QD
     Route: 048
     Dates: start: 20120719, end: 20120815
  5. PEGINTERFERON ALFA-2B [Concomitant]
     Dosage: 1.67 ?G/KG, QW
     Route: 058
     Dates: start: 20120711, end: 20120815
  6. AVAPRO [Concomitant]
     Dosage: 100 MG, QD
     Route: 048
  7. AMLODIPINE [Concomitant]
     Dosage: 5 MG, QD
     Route: 048
  8. FLUITRAN [Concomitant]
     Dosage: 1 MG, QD
     Route: 048
  9. OMEPRAL [Concomitant]
     Dosage: 10 MG, QD
     Route: 048
  10. DEPAS [Concomitant]
     Dosage: 0.5 MG, QD
     Route: 048
  11. LOXONIN [Concomitant]
     Dosage: 60 MG QD PRN
     Route: 048
     Dates: start: 20120711

REACTIONS (2)
  - Decreased appetite [Recovered/Resolved]
  - Nausea [Recovered/Resolved]
